FAERS Safety Report 19959858 (Version 2)
Quarter: 2021Q4

REPORT INFORMATION
  Report Type: Spontaneous
  Country: JP (occurrence: JP)
  Receive Date: 20211015
  Receipt Date: 20211117
  Transmission Date: 20220303
  Serious: Yes (Other)
  Sender: FDA-Public Use
  Company Number: JP-BAYER-2021A230911

PATIENT
  Age: 48 Year
  Sex: Female
  Weight: 45 kg

DRUGS (16)
  1. YAZ [Suspect]
     Active Substance: DROSPIRENONE\ETHINYL ESTRADIOL
     Indication: Dysmenorrhoea
     Dosage: 1 DF DAILY
     Dates: start: 201301, end: 202002
  2. YAZ [Suspect]
     Active Substance: DROSPIRENONE\ETHINYL ESTRADIOL
     Indication: Premenstrual syndrome
  3. TEPRENONE [Concomitant]
     Active Substance: TEPRENONE
     Indication: Gastritis
     Dosage: AFTER EACH MEAL, BEFORE BEDTIME, QID
  4. TEPRENONE [Concomitant]
     Active Substance: TEPRENONE
     Indication: Gastric ulcer
     Dosage: AFTER MEAL, TID
  5. FLUNITRAZEPAM [Concomitant]
     Active Substance: FLUNITRAZEPAM
     Indication: Anxiety
     Dosage: BEFORE BEDTIME, QD
  6. CLOTIAZEPAM [Concomitant]
     Active Substance: CLOTIAZEPAM
     Indication: Anxiety
     Dosage: AFTER MEAL, TID
  7. CLOTIAZEPAM [Concomitant]
     Active Substance: CLOTIAZEPAM
     Indication: Anxiety
     Dosage: UNK, PRN
  8. PEROSPIRONE HYDROCHLORIDE [Concomitant]
     Active Substance: PEROSPIRONE HYDROCHLORIDE
     Indication: Anxiety
     Dosage: AFTER DINNER, BEFORE BEDTIME, BID
  9. VALPROATE SODIUM [Concomitant]
     Active Substance: VALPROATE SODIUM
     Indication: Epilepsy
     Dosage: AFTER MEAL, TID
  10. LEVOTHYROXINE SODIUM [Concomitant]
     Active Substance: LEVOTHYROXINE SODIUM
     Dosage: AFTER BREAKFAST, QD
  11. ABILIFY [Concomitant]
     Active Substance: ARIPIPRAZOLE
     Dosage: AFTER BREAKFAST, QD
  12. BENZOYL PEROXIDE\CLINDAMYCIN PHOSPHATE [Concomitant]
     Active Substance: BENZOYL PEROXIDE\CLINDAMYCIN PHOSPHATE
     Dosage: BEFORE BEDTIME, QD
  13. TOPIRAMATE [Concomitant]
     Active Substance: TOPIRAMATE
     Dosage: AFTER MEAL, TID
  14. NORTRIPTYLINE HYDROCHLORIDE [Concomitant]
     Active Substance: NORTRIPTYLINE HYDROCHLORIDE
     Dosage: BEFORE BEDTIME, QD
  15. ARIPIPRAZOLE [Concomitant]
     Active Substance: ARIPIPRAZOLE
     Dosage: AFTER BREAKFAST, QD
  16. LORMETAZEPAM [Concomitant]
     Active Substance: LORMETAZEPAM
     Dosage: BEFORE BEDTIME, QD

REACTIONS (4)
  - Retinal vein occlusion [Not Recovered/Not Resolved]
  - Hepatic neoplasm [Not Recovered/Not Resolved]
  - Hepatic adenoma [None]
  - Depression [None]

NARRATIVE: CASE EVENT DATE: 20190212
